FAERS Safety Report 21036595 (Version 2)
Quarter: 2022Q3

REPORT INFORMATION
  Report Type: Report from Study
  Country: US (occurrence: US)
  Receive Date: 20220702
  Receipt Date: 20220910
  Transmission Date: 20221027
  Serious: Yes (Other)
  Sender: FDA-Public Use
  Company Number: US-NOVARTISPH-NVSC2022US148336

PATIENT
  Age: 73 Year
  Sex: Female

DRUGS (1)
  1. ENTRESTO [Suspect]
     Active Substance: SACUBITRIL\VALSARTAN
     Indication: Left ventricular dysfunction
     Dosage: 1 DOSAGE FORM, QD
     Route: 048
     Dates: start: 20220624, end: 20220628

REACTIONS (6)
  - Loss of consciousness [Recovered/Resolved]
  - Dysstasia [Recovered/Resolved]
  - Pain in extremity [Recovered/Resolved]
  - Blood pressure decreased [Recovered/Resolved]
  - Inappropriate schedule of product administration [Recovered/Resolved]
  - Product use in unapproved indication [Unknown]

NARRATIVE: CASE EVENT DATE: 20220601
